FAERS Safety Report 9725582 (Version 1)
Quarter: 2013Q4

REPORT INFORMATION
  Report Type: Spontaneous
  Country: US (occurrence: None)
  Receive Date: 20131202
  Receipt Date: 20131202
  Transmission Date: 20140711
  Serious: Yes (Hospitalization)
  Sender: FDA-Public Use
  Company Number: None

PATIENT
  Age: 32 Year
  Sex: Female
  Weight: 60.78 kg

DRUGS (1)
  1. MIRENA [Suspect]
     Dates: start: 20131126, end: 20131130

REACTIONS (13)
  - Procedural pain [None]
  - Dizziness [None]
  - Nausea [None]
  - Anxiety [None]
  - Palpitations [None]
  - Abdominal distension [None]
  - Pain [None]
  - Haemorrhage [None]
  - Depression [None]
  - Feeling abnormal [None]
  - Neuralgia [None]
  - Fatigue [None]
  - Apathy [None]
